FAERS Safety Report 8840845 (Version 8)
Quarter: 2014Q3

REPORT INFORMATION
  Report Type: Report from Study
  Country: CA (occurrence: CA)
  Receive Date: 20121015
  Receipt Date: 20140925
  Transmission Date: 20150326
  Serious: Yes (Hospitalization)
  Sender: FDA-Public Use
  Company Number: PHHY2011CA87916

PATIENT
  Age: 59 Year
  Sex: Female

DRUGS (3)
  1. SANDOSTATIN LAR DEPOT [Suspect]
     Active Substance: OCTREOTIDE ACETATE
     Dosage: 30 MG, EVERY 4 WEEKS
     Route: 030
     Dates: start: 20121024
  2. SANDOSTATIN LAR DEPOT [Suspect]
     Active Substance: OCTREOTIDE ACETATE
     Indication: PANCREATIC ISLETS HYPERPLASIA
     Dosage: 30 MG, EVERY 4 WEEKS
     Route: 030
     Dates: start: 20110513, end: 20120906
  3. SANDOSTATIN LAR DEPOT [Suspect]
     Active Substance: OCTREOTIDE ACETATE
     Dosage: UNK UKN, UNK
     Route: 030
     Dates: start: 20140827

REACTIONS (10)
  - Fall [Unknown]
  - Sleep disorder [Unknown]
  - Coma [Unknown]
  - Hypovitaminosis [Unknown]
  - Gait disturbance [Unknown]
  - Breast pain [Unknown]
  - Pain in extremity [Unknown]
  - Pancreatic disorder [Unknown]
  - Blood pressure increased [Unknown]
  - Hypoglycaemia [Not Recovered/Not Resolved]

NARRATIVE: CASE EVENT DATE: 20140818
